FAERS Safety Report 9807237 (Version 1)
Quarter: 2014Q1

REPORT INFORMATION
  Report Type: Spontaneous
  Country: US (occurrence: US)
  Receive Date: 20140110
  Receipt Date: 20140110
  Transmission Date: 20141002
  Serious: No
  Sender: FDA-Public Use
  Company Number: US-BIOGENIDEC-2014BI001028

PATIENT
  Sex: Female

DRUGS (2)
  1. AVONEX [Suspect]
     Indication: MULTIPLE SCLEROSIS
     Route: 030
     Dates: start: 20100212, end: 20121101
  2. AVONEX [Suspect]
     Indication: MULTIPLE SCLEROSIS
     Route: 030
     Dates: start: 20131202

REACTIONS (4)
  - Pollakiuria [Not Recovered/Not Resolved]
  - Micturition urgency [Not Recovered/Not Resolved]
  - Libido decreased [Not Recovered/Not Resolved]
  - Vulvovaginal dryness [Not Recovered/Not Resolved]
